FAERS Safety Report 16012724 (Version 3)
Quarter: 2019Q2

REPORT INFORMATION
  Report Type: Spontaneous
  Country: DE (occurrence: DE)
  Receive Date: 20190227
  Receipt Date: 20190430
  Transmission Date: 20190711
  Serious: Yes (Death, Hospitalization, Other)
  Sender: FDA-Public Use
  Company Number: DE-MYLANLABS-2019M1018208

PATIENT
  Age: 79 Year
  Sex: Female

DRUGS (18)
  1. PANTOZOL [Concomitant]
     Active Substance: PANTOPRAZOLE SODIUM
     Indication: PRODUCT USED FOR UNKNOWN INDICATION
     Dosage: 1-0-0 (AT HOSPITAL DISCHARGE)
     Route: 065
     Dates: start: 20181206
  2. L-THYROXIN                         /00068001/ [Concomitant]
     Active Substance: LEVOTHYROXINE
     Dosage: 1-0-0 (AT HOSPITAL DISCHARGE)
     Route: 065
     Dates: start: 20181206
  3. VALSARTAN. [Concomitant]
     Active Substance: VALSARTAN
     Indication: PRODUCT USED FOR UNKNOWN INDICATION
     Dosage: 1-0-1 (AT HOSPITAL DISCHARGE)
     Route: 065
     Dates: start: 20180505
  4. VALSARTAN HEXAL [Suspect]
     Active Substance: VALSARTAN
     Dosage: 160 MILLIGRAM, BID
     Route: 065
     Dates: start: 201403
  5. BISOPROLOL [Concomitant]
     Active Substance: BISOPROLOL
     Dosage: 1/2-0-0 (AT HOSPITAL DISCHARGE)
     Route: 065
     Dates: start: 20181206
  6. VALSARTAN. [Concomitant]
     Active Substance: VALSARTAN
     Dosage: 1-0-1 (AT HOSPITAL DISCHARGE)
     Dates: start: 20181206
  7. L-THYROXIN                         /00068001/ [Concomitant]
     Active Substance: LEVOTHYROXINE
     Indication: PRODUCT USED FOR UNKNOWN INDICATION
     Dosage: 1-0-0 (AT HOSPITAL DISCHARGE)
     Route: 065
     Dates: start: 20180505
  8. DEXAMETHASON                       /00016001/ [Concomitant]
     Active Substance: DEXAMETHASONE
     Indication: PRODUCT USED FOR UNKNOWN INDICATION
     Dosage: 1-1-1 (AT HOSPITAL DISCHARGE)
     Route: 065
     Dates: start: 20181206
  9. AMLODIPIN                          /00972401/ [Concomitant]
     Active Substance: AMLODIPINE BESYLATE
     Indication: PRODUCT USED FOR UNKNOWN INDICATION
     Dosage: 1-0-1 (AT HOSPITAL DISCHARGE)
     Route: 065
     Dates: start: 20180505
  10. HCT [Concomitant]
     Active Substance: HYDROCHLOROTHIAZIDE
     Indication: PRODUCT USED FOR UNKNOWN INDICATION
     Dosage: 1/2-0-0 (AT HOSPITAL DISCHARGE)
     Route: 065
     Dates: start: 20181206
  11. VALSARTAN MYLAN 160 MG FILMTABLETTEN [Suspect]
     Active Substance: VALSARTAN
     Indication: HYPERTENSION
     Dosage: 160 MILLIGRAM, BID
     Route: 065
     Dates: start: 201702, end: 201807
  12. VALSARTAN 1A PHARMA [Suspect]
     Active Substance: VALSARTAN
     Indication: HYPERTENSION
     Dosage: 320 OR 160 MG BID
     Route: 065
     Dates: start: 201312
  13. BISOPROLOL [Concomitant]
     Active Substance: BISOPROLOL
     Indication: PRODUCT USED FOR UNKNOWN INDICATION
     Dosage: 1/2-0-0 AT HOSPITAL DISCHARGE
     Route: 065
     Dates: start: 20180505
  14. AMLODIPIN                          /00972401/ [Concomitant]
     Active Substance: AMLODIPINE BESYLATE
     Dosage: 1-0-1 (AT HOSPITAL DISCHARGE)
     Route: 065
     Dates: start: 20181206
  15. ACTRAPID [Concomitant]
     Active Substance: INSULIN HUMAN
     Indication: PRODUCT USED FOR UNKNOWN INDICATION
     Dosage: ACCORDING TO SCHEME (AT HOSPITAL DISCHARGE)
     Route: 065
     Dates: start: 20181206
  16. VALSARTAN 1A PHARMA [Suspect]
     Active Substance: VALSARTAN
     Dosage: 320 OR 160 MG BID
     Route: 065
     Dates: start: 201708
  17. VALSARTAN HEXAL [Suspect]
     Active Substance: VALSARTAN
     Indication: HYPERTENSION
     Dosage: 160 MILLIGRAM, BID
     Route: 065
     Dates: start: 201310
  18. VALSARTAN HEXAL [Suspect]
     Active Substance: VALSARTAN
     Dosage: 160 MILLIGRAM, BID
     Route: 065
     Dates: start: 201402

REACTIONS (13)
  - Renal cell carcinoma [Not Recovered/Not Resolved]
  - Metastases to central nervous system [Unknown]
  - Loss of personal independence in daily activities [Unknown]
  - Brain oedema [Unknown]
  - Renal cyst [Unknown]
  - Death [Fatal]
  - Aortic dilatation [Unknown]
  - Cholelithiasis [Unknown]
  - Postoperative renal failure [Unknown]
  - Metastases to lung [Unknown]
  - Hypoaesthesia [Unknown]
  - Blood glucose abnormal [Unknown]
  - Hypertension [Unknown]

NARRATIVE: CASE EVENT DATE: 2018
